FAERS Safety Report 12472459 (Version 1)
Quarter: 2016Q2

REPORT INFORMATION
  Report Type: Spontaneous
  Country: US (occurrence: US)
  Receive Date: 20160616
  Receipt Date: 20160616
  Transmission Date: 20160815
  Serious: No
  Sender: FDA-Public Use
  Company Number: US-ALLERGAN-1647427

PATIENT
  Age: 38 Year
  Sex: Female

DRUGS (1)
  1. PROGESTERONE UNKNOWN PRODUCT [Suspect]
     Active Substance: PROGESTERONE
     Indication: INFERTILITY
     Dosage: 8 %, DAILY
     Route: 067

REACTIONS (3)
  - Pruritus [Recovered/Resolved]
  - Urticaria [Recovered/Resolved]
  - Rash generalised [Recovered/Resolved]
